FAERS Safety Report 6522399-2 (Version None)
Quarter: 2009Q4

REPORT INFORMATION
  Report Type: 
  Country: None (occurrence: None)
  Receive Date: 20091230
  Receipt Date: 20091217
  Transmission Date: 20100525
  Serious: Yes (Other)
  Sender: FDA-Public Use
  Company Number: US-ROCHE-669217

PATIENT
  Sex: Female
  Weight: 58.1 kg

DRUGS (2)
  1. ISOTRETINOIN [Suspect]
     Indication: ACNE
     Dosage: THE PATIENT WAS DISPENSED ACCUTANE 40 MG CAPSULE ON 23 MARCH 2009, DISCONTINUED APPRX. ON 15 OCT 09
     Route: 048
  2. AMNESTEEM [Suspect]
     Indication: DRUG USE FOR UNKNOWN INDICATION
     Dosage: THE PATIENT WAS DISPENSED AMNESTEEM 40 MG CAP ON 27 APR 09,1 JUN,1 JULY, 11 SEP +13 OCT 2009
     Route: 065

REACTIONS (4)
  - ARTHRALGIA [None]
  - DYSMENORRHOEA [None]
  - INCREASED TENDENCY TO BRUISE [None]
  - PELVIC PAIN [None]
